FAERS Safety Report 17413759 (Version 1)
Quarter: 2020Q1

REPORT INFORMATION
  Report Type: Spontaneous
  Country: US (occurrence: US)
  Receive Date: 20200213
  Receipt Date: 20200213
  Transmission Date: 20200409
  Serious: Yes (Other)
  Sender: FDA-Public Use
  Company Number: None

PATIENT
  Age: 80 Year
  Sex: Female
  Weight: 58.5 kg

DRUGS (1)
  1. DOTAREM [Suspect]
     Active Substance: GADOTERATE MEGLUMINE
     Indication: X-RAY WITH CONTRAST
     Dates: start: 20191030, end: 20191030

REACTIONS (2)
  - Gingival discomfort [None]
  - Dental discomfort [None]

NARRATIVE: CASE EVENT DATE: 20191030
